FAERS Safety Report 9400045 (Version 2)
Quarter: 2013Q3

REPORT INFORMATION
  Report Type: Spontaneous
  Country: US (occurrence: US)
  Receive Date: 20130715
  Receipt Date: 20130822
  Transmission Date: 20140515
  Serious: Yes (Other)
  Sender: FDA-Public Use
  Company Number: US-ASTELLAS-2013US007191

PATIENT
  Age: 78 Year
  Sex: Female

DRUGS (1)
  1. MYRBETRIQ [Suspect]
     Indication: POLLAKIURIA
     Dosage: 50 MG, UID/QD
     Route: 048
     Dates: start: 20130610

REACTIONS (4)
  - Drug ineffective [Unknown]
  - Intentional drug misuse [Unknown]
  - Sciatica [Not Recovered/Not Resolved]
  - Insomnia [Unknown]
